FAERS Safety Report 12945030 (Version 1)
Quarter: 2016Q4

REPORT INFORMATION
  Report Type: Spontaneous
  Country: DE (occurrence: DE)
  Receive Date: 20161115
  Receipt Date: 20161115
  Transmission Date: 20170207
  Serious: Yes (Other)
  Sender: FDA-Public Use
  Company Number: PHHY2016DE154666

PATIENT
  Sex: Male

DRUGS (2)
  1. ZOMETA [Suspect]
     Active Substance: ZOLEDRONIC ACID
     Indication: BONE PAIN
     Dosage: 4 MG/100 ML, UNK (1ST INFUSION, PLANNED EVERY 3 MONTHS)
     Route: 065
     Dates: start: 20160907
  2. ZOMETA [Suspect]
     Active Substance: ZOLEDRONIC ACID
     Indication: PLASMA CELL MYELOMA

REACTIONS (15)
  - Renal disorder [Unknown]
  - Paraesthesia [Unknown]
  - Bone pain [Recovering/Resolving]
  - Circulatory collapse [Unknown]
  - Back pain [Unknown]
  - Movement disorder [Recovered/Resolved]
  - Acute phase reaction [Unknown]
  - Pain in extremity [Unknown]
  - Glomerular filtration rate decreased [Unknown]
  - Pyrexia [Unknown]
  - Muscle spasms [Unknown]
  - Joint swelling [Unknown]
  - Hypocalcaemia [Unknown]
  - Chills [Unknown]
  - Feeling cold [Unknown]

NARRATIVE: CASE EVENT DATE: 201609
